FAERS Safety Report 12812768 (Version 2)
Quarter: 2016Q4

REPORT INFORMATION
  Report Type: Spontaneous
  Country: FR (occurrence: FR)
  Receive Date: 20161005
  Receipt Date: 20161102
  Transmission Date: 20170207
  Serious: Yes (Other)
  Sender: FDA-Public Use
  Company Number: FR-TEVA-655542ISR

PATIENT
  Age: 68 Year
  Sex: Male
  Weight: 83 kg

DRUGS (2)
  1. COTAREG 160/25 [Concomitant]
     Indication: HYPERTENSION
     Dosage: 1 DOSAGE FORMS DAILY; 1 DF= 160 MG VALSARTAN + 25 MG HYDROCHLOROTHIAZIDE
     Route: 048
  2. AIROMIR AUTOHALER 100 MCG [Suspect]
     Active Substance: ALBUTEROL SULFATE
     Indication: BRONCHITIS
     Dosage: EXACT FORM: SUSPENSION FOR INHALATION. 2 PUFF PER DAY OR MORE IF NECESSARY
     Route: 055
     Dates: start: 20160418

REACTIONS (2)
  - Product use issue [Unknown]
  - Breath alcohol test positive [Unknown]

NARRATIVE: CASE EVENT DATE: 20160418
